FAERS Safety Report 23315485 (Version 1)
Quarter: 2023Q4

REPORT INFORMATION
  Report Type: Spontaneous
  Country: US (occurrence: US)
  Receive Date: 20231219
  Receipt Date: 20231219
  Transmission Date: 20240110
  Serious: No
  Sender: FDA-Public Use
  Company Number: US-ORG100016242-2023000112

PATIENT

DRUGS (2)
  1. EXPAREL [Suspect]
     Active Substance: BUPIVACAINE
     Indication: Surgery
     Dosage: NOT ADMINISTERED
     Route: 065
     Dates: start: 202302, end: 202302
  2. PHISODERM [Suspect]
     Active Substance: HEXACHLOROPHENE
     Indication: Surgery
     Dosage: DOSAGE NOT REPORTED
     Route: 050
     Dates: start: 202302, end: 202302

REACTIONS (1)
  - Wrong product administered [Unknown]

NARRATIVE: CASE EVENT DATE: 20230201
